FAERS Safety Report 16624142 (Version 3)
Quarter: 2019Q3

REPORT INFORMATION
  Report Type: Report from Study
  Country: CA (occurrence: CA)
  Receive Date: 20190724
  Receipt Date: 20190917
  Transmission Date: 20191004
  Serious: Yes (Hospitalization)
  Sender: FDA-Public Use
  Company Number: CA-GLAXOSMITHKLINE-CA2019AMR130786

PATIENT
  Age: 73 Year
  Sex: Female

DRUGS (3)
  1. MEPOLIZUMAB [Suspect]
     Active Substance: MEPOLIZUMAB
     Dosage: 100 MG, Z (MONTHLY)
     Route: 042
  2. MEPOLIZUMAB [Suspect]
     Active Substance: MEPOLIZUMAB
     Dosage: 100 MG, Z(MONTHLY)
     Route: 042
  3. MEPOLIZUMAB [Suspect]
     Active Substance: MEPOLIZUMAB
     Indication: ASTHMA
     Dosage: 100 MG, Z, (MONTHLY)
     Route: 042
     Dates: start: 20170912

REACTIONS (5)
  - Loss of personal independence in daily activities [Unknown]
  - Dyspnoea [Not Recovered/Not Resolved]
  - Sputum discoloured [Recovering/Resolving]
  - Productive cough [Not Recovered/Not Resolved]
  - Viral infection [Recovering/Resolving]

NARRATIVE: CASE EVENT DATE: 201907
